FAERS Safety Report 23846595 (Version 2)
Quarter: 2024Q2

REPORT INFORMATION
  Report Type: Spontaneous
  Country: BE (occurrence: BE)
  Receive Date: 20240513
  Receipt Date: 20240528
  Transmission Date: 20240716
  Serious: Yes (Death, Life-Threatening, Hospitalization, Other)
  Sender: FDA-Public Use
  Company Number: BE-SANDOZ-SDZ2024BE033145

PATIENT
  Age: 52 Year
  Sex: Male
  Weight: 87 kg

DRUGS (6)
  1. ACETAMINOPHEN [Suspect]
     Active Substance: ACETAMINOPHEN
     Indication: Back pain
  2. ACETAMINOPHEN [Suspect]
     Active Substance: ACETAMINOPHEN
     Dosage: OVER THE LAST 3 DAYS
     Route: 048
  3. ACETAMINOPHEN [Suspect]
     Active Substance: ACETAMINOPHEN
     Dosage: DAILY CONSUMPTION OF FREQUENTLY 6 G, OR EVEN MORE
  4. PREGABALIN [Concomitant]
     Active Substance: PREGABALIN
     Indication: Back pain
  5. CLONAZEPAM [Concomitant]
     Active Substance: CLONAZEPAM
     Indication: Back pain
  6. OXYCODONE [Concomitant]
     Active Substance: OXYCODONE\OXYCODONE HYDROCHLORIDE
     Indication: Back pain

REACTIONS (4)
  - Acute hepatic failure [Fatal]
  - Coagulopathy [Fatal]
  - Overdose [Fatal]
  - Encephalopathy [Fatal]
